FAERS Safety Report 7704339-3 (Version None)
Quarter: 2011Q3

REPORT INFORMATION
  Report Type: 
  Country: None (occurrence: None)
  Receive Date: 20110823
  Receipt Date: 20110817
  Transmission Date: 20111222
  Serious: Yes (Congenital Anomaly, Other)
  Sender: FDA-Public Use
  Company Number: US-PFIZER INC-2011190615

PATIENT
  Sex: Female

DRUGS (2)
  1. PRENATAL VITAMINS [Concomitant]
     Dosage: UNK
     Route: 064
  2. ZOLOFT [Suspect]
     Indication: ANXIETY
     Dosage: 100 MG AND 50 MG EVERYDAY
     Route: 064

REACTIONS (5)
  - DYSKINESIA [None]
  - BONE DEVELOPMENT ABNORMAL [None]
  - CONGENITAL PNEUMONIA [None]
  - CARDIOMEGALY [None]
  - MATERNAL EXPOSURE DURING PREGNANCY [None]
